FAERS Safety Report 18302727 (Version 2)
Quarter: 2020Q4

REPORT INFORMATION
  Report Type: Spontaneous
  Country: JP (occurrence: JP)
  Receive Date: 20200923
  Receipt Date: 20201012
  Transmission Date: 20210113
  Serious: Yes (Death, Other)
  Sender: FDA-Public Use
  Company Number: JP-009507513-2009JPN001899J

PATIENT
  Age: 7 Decade
  Sex: Male

DRUGS (1)
  1. ZERBAXA [Suspect]
     Active Substance: CEFTOLOZANE SULFATE\TAZOBACTAM SODIUM
     Indication: PNEUMONIA PSEUDOMONAL
     Dosage: 1500 MILLIGRAM, TID
     Route: 041
     Dates: start: 202009, end: 202009

REACTIONS (2)
  - Pneumonia pseudomonal [Fatal]
  - Drug ineffective [Unknown]

NARRATIVE: CASE EVENT DATE: 202009
